FAERS Safety Report 5053050-9 (Version None)
Quarter: 2006Q3

REPORT INFORMATION
  Report Type: 
  Country: None (occurrence: None)
  Receive Date: 20060717
  Receipt Date: 20060502
  Transmission Date: 20061208
  Serious: Yes (Hospitalization)
  Sender: FDA-Public Use
  Company Number: CA-BRISTOL-MYERS SQUIBB COMPANY-13364153

PATIENT
  Age: 60 Year
  Sex: Male
  Weight: 71 kg

DRUGS (12)
  1. CARBOPLATIN [Suspect]
     Indication: LUNG NEOPLASM MALIGNANT
     Route: 042
     Dates: start: 20060321, end: 20060321
  2. TAXOL [Suspect]
     Indication: LUNG NEOPLASM MALIGNANT
     Route: 042
     Dates: start: 20060321, end: 20060321
  3. HYDROMORPHONE HCL [Concomitant]
     Route: 048
     Dates: start: 20060301, end: 20060310
  4. ATIVAN [Concomitant]
     Route: 048
     Dates: start: 20060320
  5. MILK OF MAGNESIA TAB [Concomitant]
     Route: 048
     Dates: start: 20051208
  6. EMTEC-30 [Concomitant]
     Route: 048
     Dates: start: 20060119
  7. DOCUSATE SODIUM [Concomitant]
     Route: 048
     Dates: start: 20060301
  8. SENOKOT [Concomitant]
     Route: 048
     Dates: start: 20051001
  9. LACTULOSE [Concomitant]
     Route: 048
     Dates: start: 20051129, end: 20060410
  10. METOPROLOL TARTRATE [Concomitant]
     Route: 048
     Dates: start: 20041001
  11. PROCHLORPERAZINE [Concomitant]
     Route: 048
     Dates: start: 20060321, end: 20060424
  12. EX-LAX [Concomitant]

REACTIONS (2)
  - ATRIAL FIBRILLATION [None]
  - TACHYCARDIA [None]
